FAERS Safety Report 10039385 (Version 2)
Quarter: 2014Q1

REPORT INFORMATION
  Report Type: Spontaneous
  Country: VN (occurrence: VN)
  Receive Date: 20140326
  Receipt Date: 20140326
  Transmission Date: 20141002
  Serious: Yes (Hospitalization)
  Sender: FDA-Public Use
  Company Number: PHHY2014VN027906

PATIENT
  Age: 28 Year
  Sex: Female

DRUGS (6)
  1. TEGRETOL [Suspect]
     Indication: BIPOLAR DISORDER
     Dosage: 400 MG, DAILY (02 DF)
     Route: 048
     Dates: start: 20140210, end: 20140214
  2. TEGRETOL [Suspect]
     Dosage: 600 MG, DAILY (02 DF)
     Route: 048
     Dates: start: 20140215, end: 20140217
  3. TEGRETOL [Suspect]
     Dosage: 800 MG, DAILY  (02 DF)
     Route: 048
     Dates: start: 20140218, end: 20140219
  4. TEGRETOL [Suspect]
     Dosage: 400 MG, UNK  (01 DF)
     Route: 048
     Dates: start: 20140220, end: 20140220
  5. RISPERIDONE [Concomitant]
     Dosage: 2 MG, DAILY
     Route: 048
     Dates: start: 20140210, end: 20140214
  6. RISPERIDONE [Concomitant]
     Dosage: 4 MG, DAILY
     Route: 048
     Dates: start: 20140215, end: 20140222

REACTIONS (15)
  - Stevens-Johnson syndrome [Recovered/Resolved]
  - Drug hypersensitivity [Recovered/Resolved]
  - Rash [Recovered/Resolved]
  - Pyrexia [Recovered/Resolved]
  - Swelling [Recovered/Resolved]
  - Skin exfoliation [Recovered/Resolved]
  - Blister [Recovered/Resolved]
  - Ulcer [Recovered/Resolved]
  - Rash erythematous [Recovered/Resolved]
  - Rash vesicular [Recovered/Resolved]
  - Hypotension [Recovered/Resolved]
  - Mental disorder [Unknown]
  - Logorrhoea [Unknown]
  - Agitation [Unknown]
  - Infection [Recovered/Resolved]
